FAERS Safety Report 9942483 (Version 2)
Quarter: 2014Q1

REPORT INFORMATION
  Report Type: Report from Study
  Country: DE (occurrence: DE)
  Receive Date: 20140303
  Receipt Date: 20140303
  Transmission Date: 20141002
  Serious: Yes (Hospitalization)
  Sender: FDA-Public Use
  Company Number: DE-ABBVIE-11P-062-0871469-00

PATIENT
  Age: 54 Year
  Sex: Male

DRUGS (4)
  1. HUMIRA [Suspect]
     Indication: RHEUMATOID ARTHRITIS
     Route: 058
     Dates: start: 20100927, end: 20110727
  2. HUMIRA [Suspect]
     Dates: end: 20111102
  3. MTX [Concomitant]
     Indication: PRODUCT USED FOR UNKNOWN INDICATION
  4. RAMIPRIL [Concomitant]
     Indication: PRODUCT USED FOR UNKNOWN INDICATION

REACTIONS (5)
  - Joint stiffness [Recovered/Resolved]
  - Impaired healing [Recovered/Resolved]
  - Musculoskeletal stiffness [Recovered/Resolved]
  - Ankle operation [Recovered/Resolved]
  - Cervical vertebral fracture [Recovered/Resolved]
